FAERS Safety Report 6357648-7 (Version None)
Quarter: 2009Q3

REPORT INFORMATION
  Report Type: 
  Country: None (occurrence: None)
  Receive Date: 20090916
  Receipt Date: 20090602
  Transmission Date: 20100115
  Serious: Yes (Other)
  Sender: FDA-Public Use
  Company Number: US-AMGEN-US349839

PATIENT
  Sex: Male

DRUGS (9)
  1. NPLATE [Suspect]
     Indication: IDIOPATHIC THROMBOCYTOPENIC PURPURA
     Route: 058
     Dates: start: 20090121, end: 20090206
  2. CORTICOSTEROIDS [Concomitant]
     Dates: start: 20080220
  3. AMICAR [Concomitant]
     Dates: start: 20090101
  4. AMIODARONE HCL [Concomitant]
  5. SYNTHROID [Concomitant]
  6. ALLOPURINOL [Concomitant]
  7. CELEBREX [Concomitant]
  8. NEXIUM [Concomitant]
  9. FENTANYL [Concomitant]

REACTIONS (1)
  - DRUG INEFFECTIVE [None]
